FAERS Safety Report 6057554-1 (Version None)
Quarter: 2009Q1

REPORT INFORMATION
  Report Type: 
  Country: None (occurrence: None)
  Receive Date: 20090127
  Receipt Date: 20090127
  Transmission Date: 20090719
  Serious: No
  Sender: FDA-Public Use
  Company Number: None

PATIENT
  Sex: Male

DRUGS (2)
  1. ZYPREXA [Suspect]
     Dosage: 20MG HS PO
     Route: 048
     Dates: start: 20070411, end: 20080123
  2. VALPROIC ACID [Suspect]
     Dosage: 750 MG AM 1000 MG HS AM AND HS PO
     Route: 048
     Dates: start: 20070316, end: 20080123

REACTIONS (1)
  - TREMOR [None]
